FAERS Safety Report 11659409 (Version 2)
Quarter: 2016Q4

REPORT INFORMATION
  Report Type: Spontaneous
  Country: US (occurrence: US)
  Receive Date: 20151026
  Receipt Date: 20161108
  Transmission Date: 20170206
  Serious: Yes (Hospitalization)
  Sender: FDA-Public Use
  Company Number: US-NOVOPROD-468030

PATIENT
  Age: 64 Year
  Sex: Female

DRUGS (5)
  1. VAGIFEM [Suspect]
     Active Substance: ESTRADIOL
     Indication: POSTMENOPAUSE
     Dosage: 10 MCG QD FOR 2 WEEKS AND THEN 10 MCG TWICE WEEKLY
     Route: 067
     Dates: start: 201403, end: 20140630
  2. LISINOPRIL ACTAVIS                 /00894001/ [Concomitant]
     Indication: HYPERTENSION
  3. VAGIFEM [Suspect]
     Active Substance: ESTRADIOL
     Dosage: 10 MCG QD FOR 2 WEEKS AND THEN 10 MCG TWICE WEEKLY
     Route: 067
     Dates: start: 201403, end: 20140630
  4. PROTONIX                           /00661201/ [Concomitant]
     Active Substance: OMEPRAZOLE
     Indication: GASTROOESOPHAGEAL REFLUX DISEASE
  5. SYNTHROID [Concomitant]
     Active Substance: LEVOTHYROXINE SODIUM
     Indication: HYPOTHYROIDISM

REACTIONS (1)
  - Cerebrovascular accident [Recovered/Resolved with Sequelae]

NARRATIVE: CASE EVENT DATE: 20140630
